FAERS Safety Report 13946064 (Version 4)
Quarter: 2018Q1

REPORT INFORMATION
  Report Type: Spontaneous
  Country: US (occurrence: US)
  Receive Date: 20170907
  Receipt Date: 20180206
  Transmission Date: 20180508
  Serious: Yes (Hospitalization, Other)
  Sender: FDA-Public Use
  Company Number: US-PFIZER INC-2017382767

PATIENT
  Sex: Female

DRUGS (2)
  1. TETRACYCLINE HCL [Suspect]
     Active Substance: TETRACYCLINE HYDROCHLORIDE
     Indication: INFECTION
  2. TETRACYCLINE HCL [Suspect]
     Active Substance: TETRACYCLINE HYDROCHLORIDE
     Indication: PYREXIA
     Dosage: UNK
     Route: 048
     Dates: start: 1965

REACTIONS (18)
  - Ear infection [Not Recovered/Not Resolved]
  - Dental necrosis [Unknown]
  - Ear haemorrhage [Unknown]
  - Pain in jaw [Unknown]
  - Tooth loss [Not Recovered/Not Resolved]
  - Tooth discolouration [Recovered/Resolved with Sequelae]
  - Gingival disorder [Not Recovered/Not Resolved]
  - Ear pain [Not Recovered/Not Resolved]
  - Ear swelling [Not Recovered/Not Resolved]
  - Oral disorder [Unknown]
  - Sleep apnoea syndrome [Recovering/Resolving]
  - Exostosis [Not Recovered/Not Resolved]
  - Deafness [Not Recovered/Not Resolved]
  - Toothache [Not Recovered/Not Resolved]
  - Temporomandibular joint syndrome [Not Recovered/Not Resolved]
  - Lymphadenopathy [Not Recovered/Not Resolved]
  - Bruxism [Unknown]
  - Headache [Unknown]
